FAERS Safety Report 7820461-5 (Version None)
Quarter: 2011Q4

REPORT INFORMATION
  Report Type: 
  Country: None (occurrence: None)
  Receive Date: 20111012
  Receipt Date: 20111005
  Transmission Date: 20120403
  Serious: Yes (Hospitalization, Other)
  Sender: FDA-Public Use
  Company Number: 2011SP025635

PATIENT
  Age: 23 Year
  Sex: Female
  Weight: 113.3993 kg

DRUGS (1)
  1. NUVARING [Suspect]
     Indication: CONTRACEPTION
     Dates: start: 20070101, end: 20090529

REACTIONS (26)
  - ANXIETY [None]
  - HEADACHE [None]
  - ARTHRALGIA [None]
  - DILATATION VENTRICULAR [None]
  - CARDIAC VENTRICULAR DISORDER [None]
  - WHITE BLOOD CELL COUNT INCREASED [None]
  - OTITIS MEDIA [None]
  - PULMONARY EMBOLISM [None]
  - HYPERCOAGULATION [None]
  - RASH [None]
  - JOINT CREPITATION [None]
  - POLYCYSTIC OVARIES [None]
  - DEPRESSION [None]
  - PNEUMONIA [None]
  - MIGRAINE [None]
  - DEEP VEIN THROMBOSIS [None]
  - PULMONARY HYPERTENSION [None]
  - CHEST PAIN [None]
  - DYSPNOEA [None]
  - PAINFUL RESPIRATION [None]
  - BODY TEMPERATURE INCREASED [None]
  - BENIGN INTRACRANIAL HYPERTENSION [None]
  - MUSCLE SPASMS [None]
  - TACHYCARDIA [None]
  - JAUNDICE [None]
  - MEDICAL DEVICE PAIN [None]
